FAERS Safety Report 10733705 (Version 1)
Quarter: 2015Q1

REPORT INFORMATION
  Report Type: Report from Study
  Country: JP (occurrence: JP)
  Receive Date: 20150123
  Receipt Date: 20150123
  Transmission Date: 20150721
  Serious: Yes (Other)
  Sender: FDA-Public Use
  Company Number: JP-BRISTOL-MYERS SQUIBB COMPANY-BMS-2015-003825

PATIENT
  Age: 65 Year
  Sex: Female

DRUGS (1)
  1. SAXAGLIPTIN [Suspect]
     Active Substance: SAXAGLIPTIN
     Indication: PRODUCT USED FOR UNKNOWN INDICATION
     Dosage: 5 MG, UNK
     Route: 048
     Dates: start: 20140923, end: 20150105

REACTIONS (1)
  - Macular fibrosis [Unknown]

NARRATIVE: CASE EVENT DATE: 20141002
